FAERS Safety Report 9134085 (Version 2)
Quarter: 2013Q2

REPORT INFORMATION
  Report Type: Spontaneous
  Country: US (occurrence: US)
  Receive Date: 20130304
  Receipt Date: 20130415
  Transmission Date: 20140414
  Serious: Yes (Hospitalization)
  Sender: FDA-Public Use
  Company Number: US-BIOGENIDEC-2013BI018118

PATIENT
  Age: 58 Year
  Sex: Female

DRUGS (5)
  1. TYSABRI [Suspect]
     Indication: MULTIPLE SCLEROSIS
     Route: 042
     Dates: start: 20130215
  2. VIMPAT [Concomitant]
     Indication: TRIGEMINAL NEURALGIA
  3. TEGRETOL [Concomitant]
     Indication: TRIGEMINAL NEURALGIA
  4. NEURONTIN [Concomitant]
     Indication: TRIGEMINAL NEURALGIA
  5. BACLOFEN [Concomitant]
     Indication: TRIGEMINAL NEURALGIA

REACTIONS (22)
  - Dyspnoea [Recovered/Resolved]
  - Pulmonary oedema [Recovered/Resolved]
  - Cognitive disorder [Recovered/Resolved with Sequelae]
  - Wheezing [Recovered/Resolved]
  - Chills [Recovered/Resolved]
  - Vision blurred [Recovered/Resolved]
  - Headache [Recovered/Resolved]
  - Nausea [Recovered/Resolved]
  - Cardiac failure [Recovered/Resolved]
  - Cough [Recovered/Resolved]
  - Asthenia [Recovered/Resolved]
  - Anxiety [Recovered/Resolved]
  - Glossodynia [Recovered/Resolved]
  - Optic nerve injury [Not Recovered/Not Resolved]
  - Abasia [Recovered/Resolved]
  - Fatigue [Unknown]
  - Confusional state [Recovered/Resolved]
  - Oropharyngeal pain [Recovered/Resolved]
  - Memory impairment [Not Recovered/Not Resolved]
  - Multiple sclerosis [Not Recovered/Not Resolved]
  - Lung disorder [Not Recovered/Not Resolved]
  - Off label use [Unknown]
